FAERS Safety Report 20495182 (Version 1)
Quarter: 2022Q1

REPORT INFORMATION
  Report Type: Spontaneous
  Country: US (occurrence: US)
  Receive Date: 20220221
  Receipt Date: 20220221
  Transmission Date: 20220424
  Serious: No
  Sender: FDA-Public Use
  Company Number: US-GALDERMA-US2022000348

PATIENT

DRUGS (4)
  1. DIFFERIN GEL [Suspect]
     Active Substance: ADAPALENE
     Indication: Acne
     Dosage: 1 DOSAGE FORM
     Route: 061
  2. DIFFERIN DARK SPOT CORRECTING SERUM [Suspect]
     Active Substance: HYDROQUINONE
     Indication: Skin discolouration
     Dosage: 1 DOSAGE FORM, QD, BEFORE BED
     Route: 061
  3. COSMETICS [Interacting]
     Active Substance: COSMETICS
     Indication: Acne
     Dosage: 1 DOSAGE FORM
     Route: 061
  4. COSMETICS [Interacting]
     Active Substance: COSMETICS
     Indication: Product used for unknown indication
     Dosage: 1 DOSAGE FORM
     Route: 061

REACTIONS (5)
  - Rash macular [Unknown]
  - Skin tightness [Unknown]
  - Dry skin [Unknown]
  - Acne [Unknown]
  - Erythema [Unknown]
